FAERS Safety Report 4704815-1 (Version None)
Quarter: 2005Q3

REPORT INFORMATION
  Report Type: 
  Country: None (occurrence: None)
  Receive Date: 20050701
  Receipt Date: 20040701
  Transmission Date: 20060218
  Serious: No
  Sender: FDA-Public Use
  Company Number: US-GLAXOSMITHKLINE-A0516758A

PATIENT
  Age: 53 Year
  Sex: Female

DRUGS (10)
  1. PARNATE [Suspect]
     Indication: DEPRESSION
     Dosage: 7MG PER DAY
     Route: 048
     Dates: start: 19990101
  2. POTASSIUM CHLORIDE [Suspect]
     Indication: ILL-DEFINED DISORDER
  3. LEVOTHROID [Concomitant]
  4. CECLOR [Concomitant]
  5. FOSAMAX [Concomitant]
  6. CYTOMEL [Concomitant]
  7. SEROQUEL [Concomitant]
  8. KLONOPIN [Concomitant]
  9. LASIX [Concomitant]
  10. TOPAMAX [Concomitant]

REACTIONS (1)
  - DIARRHOEA [None]
